FAERS Safety Report 15134930 (Version 1)
Quarter: 2018Q3

REPORT INFORMATION
  Report Type: Spontaneous
  Country: US (occurrence: US)
  Receive Date: 20180616
  Receipt Date: 20180616
  Transmission Date: 20181010
  Serious: Yes (Disabling)
  Sender: FDA-Public Use
  Company Number: None

PATIENT
  Age: 37 Year
  Sex: Female
  Weight: 98.55 kg

DRUGS (2)
  1. HI TECH PHARMACAL FLUTICASONE PROPIONATE NASAL SPRAY USP 50 MCG 120 SP [Suspect]
     Active Substance: FLUTICASONE PROPIONATE
     Indication: HYPERSENSITIVITY
     Dosage: ?          QUANTITY:2 SPRAY(S);?
     Route: 055
     Dates: start: 20161012, end: 20180601
  2. LORATIDINE [Concomitant]
     Active Substance: LORATADINE

REACTIONS (5)
  - Headache [None]
  - Dizziness [None]
  - Dyspnoea [None]
  - Nasal congestion [None]
  - Condition aggravated [None]

NARRATIVE: CASE EVENT DATE: 20180416
